FAERS Safety Report 9267488 (Version 1)
Quarter: 2013Q2

REPORT INFORMATION
  Report Type: Spontaneous
  Country: CA (occurrence: CA)
  Receive Date: 20130502
  Receipt Date: 20130502
  Transmission Date: 20140414
  Serious: Yes (Hospitalization)
  Sender: FDA-Public Use
  Company Number: CA-GLAXOSMITHKLINE-A0976883A

PATIENT
  Age: 26 Year
  Sex: Female
  Weight: 46 kg

DRUGS (2)
  1. FLOLAN [Suspect]
     Indication: PULMONARY HYPERTENSION
     Dosage: 3.1ML SEE DOSAGE TEXT
     Route: 042
     Dates: start: 20110507
  2. FLOLAN DILUENT [Suspect]
     Indication: PULMONARY HYPERTENSION
     Dosage: 3.1ML SEE DOSAGE TEXT
     Route: 042
     Dates: start: 20110507

REACTIONS (2)
  - Device related infection [Not Recovered/Not Resolved]
  - Cellulitis [Unknown]
